FAERS Safety Report 12302637 (Version 2)
Quarter: 2016Q2

REPORT INFORMATION
  Report Type: Spontaneous
  Country: US (occurrence: US)
  Receive Date: 20160425
  Receipt Date: 20160524
  Transmission Date: 20160815
  Serious: Yes (Other)
  Sender: FDA-Public Use
  Company Number: US-SA-2015SA165915

PATIENT
  Age: 27 Year
  Sex: Female
  Weight: 231 kg

DRUGS (7)
  1. LOVENOX [Suspect]
     Active Substance: ENOXAPARIN SODIUM
     Indication: PREGNANCY
     Dosage: STARTED IT AS SOON AS THE GOT PREGNANT.
     Route: 065
     Dates: start: 201507
  2. LOVENOX [Suspect]
     Active Substance: ENOXAPARIN SODIUM
     Indication: FACTOR V DEFICIENCY
     Dosage: STARTED IT AS SOON AS THE GOT PREGNANT.
     Route: 065
     Dates: start: 201411, end: 201507
  3. LOVENOX [Suspect]
     Active Substance: ENOXAPARIN SODIUM
     Indication: PREGNANCY
     Dosage: STARTED IT AS SOON AS THE GOT PREGNANT.
     Route: 065
     Dates: end: 20150910
  4. LOVENOX [Suspect]
     Active Substance: ENOXAPARIN SODIUM
     Indication: FACTOR V DEFICIENCY
     Dosage: STARTED IT AS SOON AS THE GOT PREGNANT.
     Route: 065
     Dates: start: 201507
  5. ASPIRIN. [Concomitant]
     Active Substance: ASPIRIN
     Indication: FACTOR V DEFICIENCY
     Route: 065
     Dates: start: 20150910, end: 20151014
  6. LOVENOX [Suspect]
     Active Substance: ENOXAPARIN SODIUM
     Indication: FACTOR V DEFICIENCY
     Dosage: STARTED IT AS SOON AS THE GOT PREGNANT.
     Route: 065
     Dates: end: 20150910
  7. LOVENOX [Suspect]
     Active Substance: ENOXAPARIN SODIUM
     Indication: PREGNANCY
     Dosage: STARTED IT AS SOON AS THE GOT PREGNANT.
     Route: 065
     Dates: start: 201411, end: 201507

REACTIONS (5)
  - Exposure during pregnancy [Unknown]
  - Abortion [Unknown]
  - Thrombosis [Not Recovered/Not Resolved]
  - Deep vein thrombosis [Unknown]
  - Drug ineffective [Unknown]
